FAERS Safety Report 7956779-5 (Version None)
Quarter: 2011Q4

REPORT INFORMATION
  Report Type: 
  Country: None (occurrence: None)
  Receive Date: 20111205
  Receipt Date: 20111201
  Transmission Date: 20120403
  Serious: Yes (Hospitalization)
  Sender: FDA-Public Use
  Company Number: US-SHIRE-ALL1-2011-04727

PATIENT
  Sex: Male

DRUGS (3)
  1. INTUNIV [Suspect]
     Dosage: 1 MG, 1X/DAY:QD
     Route: 048
  2. INTUNIV [Suspect]
     Indication: ATTENTION DEFICIT/HYPERACTIVITY DISORDER
     Dosage: 14 MG, ONE DOSE(SEVEN 2 MG TABLETS TAKEN ACCIDENTLY AT ONCE)
     Dates: start: 20111130, end: 20111130
  3. INTUNIV [Suspect]
     Dosage: 2 MG, 1X/DAY:QD
     Route: 048
     Dates: start: 20111101

REACTIONS (2)
  - ADVERSE EVENT [None]
  - ACCIDENTAL OVERDOSE [None]
